FAERS Safety Report 19030643 (Version 1)
Quarter: 2021Q1

REPORT INFORMATION
  Report Type: Spontaneous
  Country: TW (occurrence: TW)
  Receive Date: 20210319
  Receipt Date: 20210319
  Transmission Date: 20210420
  Serious: Yes (Hospitalization, Other)
  Sender: FDA-Public Use
  Company Number: TW-SUN PHARMACEUTICAL INDUSTRIES LTD-2021RR-286717

PATIENT
  Age: 64 Year
  Sex: Female

DRUGS (3)
  1. FLUNITRAZEPAM [Concomitant]
     Active Substance: FLUNITRAZEPAM
     Indication: SCHIZOPHRENIA
     Dosage: 2 MILLIGRAM, DAILY
     Route: 065
  2. FLUDIAZEPAM [Concomitant]
     Active Substance: FLUDIAZEPAM
     Indication: SCHIZOPHRENIA
     Dosage: 0.75 MILLIGRAM, DAILY
     Route: 065
  3. RISPERIDONE. [Suspect]
     Active Substance: RISPERIDONE
     Indication: SCHIZOPHRENIA
     Dosage: 4 MILLIGRAM, DAILY
     Route: 065

REACTIONS (5)
  - Psychotic disorder [Recovering/Resolving]
  - Condition aggravated [Recovering/Resolving]
  - Delirium [Recovering/Resolving]
  - Altered state of consciousness [Recovering/Resolving]
  - Irritability [Recovering/Resolving]
